FAERS Safety Report 6687232-7 (Version None)
Quarter: 2010Q2

REPORT INFORMATION
  Report Type: 
  Country: None (occurrence: None)
  Receive Date: 20100419
  Receipt Date: 20091020
  Transmission Date: 20101027
  Serious: No
  Sender: FDA-Public Use
  Company Number: US-ABBOTT-09P-163-0604254-00

PATIENT
  Age: 65 Year
  Sex: Female

DRUGS (2)
  1. ZEMPLAR [Suspect]
     Indication: RENAL OSTEODYSTROPHY
     Dosage: 8MCG THREE TIMES PER WEEK
     Route: 042
     Dates: start: 20070101
  2. EPOGEN [Suspect]
     Indication: DRUG USE FOR UNKNOWN INDICATION
     Dosage: DOSE UNKNOWN
     Route: 042

REACTIONS (1)
  - PRURITUS [None]
